FAERS Safety Report 10025586 (Version 1)
Quarter: 2014Q1

REPORT INFORMATION
  Report Type: Spontaneous
  Country: US (occurrence: None)
  Receive Date: 20140304
  Receipt Date: 20140304
  Transmission Date: 20141002
  Serious: Yes (Other)
  Sender: FDA-Public Use
  Company Number: RB-61372-2013

PATIENT
  Age: 56 Year
  Sex: Male
  Weight: 120.2 kg

DRUGS (2)
  1. SUBOXONE [Suspect]
     Indication: DRUG DEPENDENCE
     Dosage: SUBOXONE FILM SUBLINGUAL
     Dates: start: 201102
  2. SUBOXONE [Suspect]
     Dosage: DOSING DETAILS UNKNOWN

REACTIONS (2)
  - Liver disorder [None]
  - Anaesthetic complication [None]
